FAERS Safety Report 24263383 (Version 16)
Quarter: 2025Q2

REPORT INFORMATION
  Report Type: Spontaneous
  Country: PL (occurrence: PL)
  Receive Date: 20240829
  Receipt Date: 20250516
  Transmission Date: 20250717
  Serious: Yes (Hospitalization, Other)
  Sender: MYLAN
  Company Number: PL-SYNOPTIS-050-L-0003

PATIENT
  Age: 31 Year
  Sex: Female

DRUGS (148)
  1. ZOLPIDEM [Interacting]
     Active Substance: ZOLPIDEM TARTRATE
     Indication: Mental disorder
     Route: 065
  2. ZOLPIDEM [Interacting]
     Active Substance: ZOLPIDEM TARTRATE
     Indication: Weight control
  3. ZOLPIDEM [Interacting]
     Active Substance: ZOLPIDEM TARTRATE
     Indication: Insomnia
  4. ZOLPIDEM [Interacting]
     Active Substance: ZOLPIDEM TARTRATE
     Indication: Depression
     Route: 065
  5. ZOLPIDEM [Interacting]
     Active Substance: ZOLPIDEM TARTRATE
     Indication: Mental disorder
     Route: 065
  6. ZOLPIDEM [Interacting]
     Active Substance: ZOLPIDEM TARTRATE
     Indication: Weight increased
  7. ZOLPIDEM [Interacting]
     Active Substance: ZOLPIDEM TARTRATE
  8. ZOLPIDEM [Interacting]
     Active Substance: ZOLPIDEM TARTRATE
     Route: 065
  9. AMOXICILLIN\CLAVULANIC ACID [Interacting]
     Active Substance: AMOXICILLIN\CLAVULANIC ACID
     Indication: Oropharyngeal pain
     Dosage: 1 GRAM, Q8H (3 GRAM, QD)
  10. AMOXICILLIN\CLAVULANIC ACID [Interacting]
     Active Substance: AMOXICILLIN\CLAVULANIC ACID
     Indication: Dysphagia
     Dosage: 1 GRAM, Q8H (3 GRAM, QD)
     Route: 048
  11. AMOXICILLIN\CLAVULANIC ACID [Interacting]
     Active Substance: AMOXICILLIN\CLAVULANIC ACID
     Indication: Throat irritation
     Dosage: 1 GRAM, Q8H (3 GRAM, QD)
     Route: 048
  12. AMOXICILLIN\CLAVULANIC ACID [Interacting]
     Active Substance: AMOXICILLIN\CLAVULANIC ACID
     Dosage: 1 GRAM, Q8H (3 GRAM, QD)
  13. BUPROPION [Interacting]
     Active Substance: BUPROPION
     Indication: Insomnia
     Route: 065
  14. BUPROPION [Interacting]
     Active Substance: BUPROPION
     Indication: Depression
  15. BUPROPION [Interacting]
     Active Substance: BUPROPION
     Indication: Weight control
  16. BUPROPION [Interacting]
     Active Substance: BUPROPION
     Indication: Mental disorder
     Route: 065
  17. BUPROPION [Interacting]
     Active Substance: BUPROPION
     Route: 065
  18. BUPROPION [Interacting]
     Active Substance: BUPROPION
  19. BUPROPION [Interacting]
     Active Substance: BUPROPION
  20. BUPROPION [Interacting]
     Active Substance: BUPROPION
     Route: 065
  21. DICLOFENAC [Interacting]
     Active Substance: DICLOFENAC
     Indication: Dysphagia
     Route: 065
  22. DICLOFENAC [Interacting]
     Active Substance: DICLOFENAC
     Indication: Throat irritation
  23. DICLOFENAC [Interacting]
     Active Substance: DICLOFENAC
     Indication: Oropharyngeal pain
  24. DICLOFENAC [Interacting]
     Active Substance: DICLOFENAC
     Indication: Throat irritation
     Route: 065
  25. DICLOFENAC [Interacting]
     Active Substance: DICLOFENAC
     Route: 065
  26. DICLOFENAC [Interacting]
     Active Substance: DICLOFENAC
  27. DICLOFENAC [Interacting]
     Active Substance: DICLOFENAC
  28. DICLOFENAC [Interacting]
     Active Substance: DICLOFENAC
     Route: 065
  29. KETOPROFEN [Suspect]
     Active Substance: KETOPROFEN
     Indication: Oropharyngeal pain
  30. KETOPROFEN [Suspect]
     Active Substance: KETOPROFEN
     Route: 042
  31. KETOPROFEN [Suspect]
     Active Substance: KETOPROFEN
     Route: 042
  32. KETOPROFEN [Suspect]
     Active Substance: KETOPROFEN
  33. ACETAMINOPHEN [Interacting]
     Active Substance: ACETAMINOPHEN
     Indication: Throat irritation
     Dosage: 1 GRAM, Q8H (3 GRAM, QD (3X1 GM)), 1 G, TID
     Route: 048
  34. ACETAMINOPHEN [Interacting]
     Active Substance: ACETAMINOPHEN
     Indication: Dysphagia
     Dosage: 1 GRAM, Q8H (3 GRAM, QD (3X1 GM)), 1 G, TID
  35. ACETAMINOPHEN [Interacting]
     Active Substance: ACETAMINOPHEN
     Indication: Oropharyngeal pain
     Dosage: 1 GRAM, Q8H (3 GRAM, QD (3X1 GM)), 1 G, TID
  36. ACETAMINOPHEN [Interacting]
     Active Substance: ACETAMINOPHEN
     Indication: Burning sensation
     Dosage: 1 GRAM, Q8H (3 GRAM, QD (3X1 GM)), 1 G, TID
     Route: 048
  37. ACETAMINOPHEN [Interacting]
     Active Substance: ACETAMINOPHEN
     Indication: Throat irritation
     Dosage: 1 G, TID
     Route: 048
  38. ACETAMINOPHEN [Interacting]
     Active Substance: ACETAMINOPHEN
     Indication: Dysphagia
     Dosage: 1 G, TID
  39. ACETAMINOPHEN [Interacting]
     Active Substance: ACETAMINOPHEN
     Indication: Oropharyngeal pain
     Dosage: 1 G, TID
  40. ACETAMINOPHEN [Interacting]
     Active Substance: ACETAMINOPHEN
     Dosage: 1 G, TID
     Route: 048
  41. METAMIZOLE [Suspect]
     Active Substance: METAMIZOLE
     Indication: Oropharyngeal pain
  42. METAMIZOLE [Suspect]
     Active Substance: METAMIZOLE
     Route: 065
  43. METAMIZOLE [Suspect]
     Active Substance: METAMIZOLE
     Route: 065
  44. METAMIZOLE [Suspect]
     Active Substance: METAMIZOLE
  45. AMOXICILLIN [Interacting]
     Active Substance: AMOXICILLIN
     Indication: Oropharyngeal pain
     Dosage: 1 GRAM, Q8H (3 GRAM, QD (3X1 GM))
     Route: 048
  46. AMOXICILLIN [Interacting]
     Active Substance: AMOXICILLIN
     Indication: Throat irritation
     Dosage: 1 GRAM, Q8H (3 GRAM, QD (3X1 GM))
  47. AMOXICILLIN [Interacting]
     Active Substance: AMOXICILLIN
     Indication: Dysphagia
     Dosage: 1 GRAM, Q8H (3 GRAM, QD (3X1 GM))
  48. AMOXICILLIN [Interacting]
     Active Substance: AMOXICILLIN
     Indication: Burning sensation
     Dosage: 1 GRAM, Q8H (3 GRAM, QD (3X1 GM))
     Route: 048
  49. AMOXICILLIN [Interacting]
     Active Substance: AMOXICILLIN
     Indication: Throat irritation
     Dosage: 1 G, TID
     Route: 048
  50. AMOXICILLIN [Interacting]
     Active Substance: AMOXICILLIN
     Indication: Oropharyngeal pain
     Dosage: 1 G, TID
  51. AMOXICILLIN [Interacting]
     Active Substance: AMOXICILLIN
     Dosage: 1 G, TID
  52. AMOXICILLIN [Interacting]
     Active Substance: AMOXICILLIN
     Dosage: 1 G, TID
     Route: 048
  53. BUPROPION HYDROCHLORIDE\NALTREXONE HYDROCHLORIDE [Interacting]
     Active Substance: BUPROPION HYDROCHLORIDE\NALTREXONE HYDROCHLORIDE
     Indication: Weight control
     Route: 065
  54. BUPROPION HYDROCHLORIDE\NALTREXONE HYDROCHLORIDE [Interacting]
     Active Substance: BUPROPION HYDROCHLORIDE\NALTREXONE HYDROCHLORIDE
     Indication: Mental disorder
  55. BUPROPION HYDROCHLORIDE\NALTREXONE HYDROCHLORIDE [Interacting]
     Active Substance: BUPROPION HYDROCHLORIDE\NALTREXONE HYDROCHLORIDE
     Indication: Mental disorder
  56. BUPROPION HYDROCHLORIDE\NALTREXONE HYDROCHLORIDE [Interacting]
     Active Substance: BUPROPION HYDROCHLORIDE\NALTREXONE HYDROCHLORIDE
     Route: 065
  57. BUPROPION HYDROCHLORIDE\NALTREXONE HYDROCHLORIDE [Interacting]
     Active Substance: BUPROPION HYDROCHLORIDE\NALTREXONE HYDROCHLORIDE
     Route: 065
  58. BUPROPION HYDROCHLORIDE\NALTREXONE HYDROCHLORIDE [Interacting]
     Active Substance: BUPROPION HYDROCHLORIDE\NALTREXONE HYDROCHLORIDE
  59. BUPROPION HYDROCHLORIDE\NALTREXONE HYDROCHLORIDE [Interacting]
     Active Substance: BUPROPION HYDROCHLORIDE\NALTREXONE HYDROCHLORIDE
  60. BUPROPION HYDROCHLORIDE\NALTREXONE HYDROCHLORIDE [Interacting]
     Active Substance: BUPROPION HYDROCHLORIDE\NALTREXONE HYDROCHLORIDE
     Route: 065
  61. SEMAGLUTIDE [Suspect]
     Active Substance: SEMAGLUTIDE
     Indication: Weight control
     Route: 065
  62. SEMAGLUTIDE [Suspect]
     Active Substance: SEMAGLUTIDE
     Indication: Mental disorder
  63. SEMAGLUTIDE [Suspect]
     Active Substance: SEMAGLUTIDE
     Indication: Insomnia
  64. SEMAGLUTIDE [Suspect]
     Active Substance: SEMAGLUTIDE
     Indication: Depression
     Route: 065
  65. SEMAGLUTIDE [Suspect]
     Active Substance: SEMAGLUTIDE
     Indication: Weight increased
     Route: 065
  66. SEMAGLUTIDE [Suspect]
     Active Substance: SEMAGLUTIDE
  67. SEMAGLUTIDE [Suspect]
     Active Substance: SEMAGLUTIDE
  68. SEMAGLUTIDE [Suspect]
     Active Substance: SEMAGLUTIDE
     Route: 065
  69. NALTREXONE [Interacting]
     Active Substance: NALTREXONE
     Indication: Insomnia
  70. NALTREXONE [Interacting]
     Active Substance: NALTREXONE
     Indication: Depression
     Route: 065
  71. NALTREXONE [Interacting]
     Active Substance: NALTREXONE
     Route: 065
  72. NALTREXONE [Interacting]
     Active Substance: NALTREXONE
  73. LIDOCAINE [Suspect]
     Active Substance: LIDOCAINE
     Indication: Oropharyngeal pain
  74. LIDOCAINE [Suspect]
     Active Substance: LIDOCAINE
     Indication: Dysphagia
     Route: 065
  75. LIDOCAINE [Suspect]
     Active Substance: LIDOCAINE
     Indication: Throat irritation
     Route: 065
  76. LIDOCAINE [Suspect]
     Active Substance: LIDOCAINE
  77. AMBROXOL [Suspect]
     Active Substance: AMBROXOL
     Indication: Oropharyngeal pain
  78. AMBROXOL [Suspect]
     Active Substance: AMBROXOL
     Indication: Mental disorder
  79. AMBROXOL [Suspect]
     Active Substance: AMBROXOL
     Indication: Neuralgia
     Route: 065
  80. AMBROXOL [Suspect]
     Active Substance: AMBROXOL
     Route: 065
  81. AMBROXOL [Suspect]
     Active Substance: AMBROXOL
  82. AMBROXOL [Suspect]
     Active Substance: AMBROXOL
  83. AMBROXOL [Suspect]
     Active Substance: AMBROXOL
     Route: 065
  84. AMBROXOL [Suspect]
     Active Substance: AMBROXOL
     Route: 065
  85. MAGNESIUM SULFATE [Concomitant]
     Active Substance: MAGNESIUM SULFATE
  86. MAGNESIUM SULFATE [Concomitant]
     Active Substance: MAGNESIUM SULFATE
  87. MAGNESIUM SULFATE [Concomitant]
     Active Substance: MAGNESIUM SULFATE
     Route: 042
  88. MAGNESIUM SULFATE [Concomitant]
     Active Substance: MAGNESIUM SULFATE
     Route: 042
  89. MAGNESIUM SULFATE [Concomitant]
     Active Substance: MAGNESIUM SULFATE
  90. MAGNESIUM SULFATE [Concomitant]
     Active Substance: MAGNESIUM SULFATE
  91. MAGNESIUM SULFATE [Concomitant]
     Active Substance: MAGNESIUM SULFATE
     Route: 042
  92. MAGNESIUM SULFATE [Concomitant]
     Active Substance: MAGNESIUM SULFATE
     Route: 042
  93. ALPHA LIPOIC ACID [Concomitant]
     Active Substance: .ALPHA.-LIPOIC ACID
  94. ALPHA LIPOIC ACID [Concomitant]
     Active Substance: .ALPHA.-LIPOIC ACID
     Route: 042
  95. ALPHA LIPOIC ACID [Concomitant]
     Active Substance: .ALPHA.-LIPOIC ACID
     Route: 042
  96. ALPHA LIPOIC ACID [Concomitant]
     Active Substance: .ALPHA.-LIPOIC ACID
  97. SERTRALINE [Concomitant]
     Active Substance: SERTRALINE HYDROCHLORIDE
     Indication: Depression
     Dosage: 100 MG/D IN THE MORNING
  98. SERTRALINE [Concomitant]
     Active Substance: SERTRALINE HYDROCHLORIDE
     Indication: Insomnia
     Dosage: 100 MG/D IN THE MORNING
     Route: 065
  99. SERTRALINE [Concomitant]
     Active Substance: SERTRALINE HYDROCHLORIDE
     Indication: Hypertension
     Dosage: 100 MG/D IN THE MORNING
     Route: 065
  100. SERTRALINE [Concomitant]
     Active Substance: SERTRALINE HYDROCHLORIDE
     Dosage: 100 MG/D IN THE MORNING
  101. AMLODIPINE [Concomitant]
     Active Substance: AMLODIPINE BESYLATE
     Indication: Hypertension
     Dosage: 10 MG OF AMLODIPINE
  102. AMLODIPINE [Concomitant]
     Active Substance: AMLODIPINE BESYLATE
     Indication: Hypertension
     Dosage: 10 MG OF AMLODIPINE
     Route: 065
  103. AMLODIPINE [Concomitant]
     Active Substance: AMLODIPINE BESYLATE
     Dosage: 10 MG OF AMLODIPINE
     Route: 065
  104. AMLODIPINE [Concomitant]
     Active Substance: AMLODIPINE BESYLATE
     Dosage: 10 MG OF AMLODIPINE
  105. MIRTAZAPINE [Concomitant]
     Active Substance: MIRTAZAPINE
     Indication: Insomnia
     Dosage: 30 MG OF MIRTAZAPINE AT NIGHT
  106. MIRTAZAPINE [Concomitant]
     Active Substance: MIRTAZAPINE
     Indication: Depression
     Dosage: 30 MG OF MIRTAZAPINE AT NIGHT
     Route: 065
  107. MIRTAZAPINE [Concomitant]
     Active Substance: MIRTAZAPINE
     Indication: Hypertension
     Dosage: 30 MG OF MIRTAZAPINE AT NIGHT
     Route: 065
  108. MIRTAZAPINE [Concomitant]
     Active Substance: MIRTAZAPINE
     Dosage: 30 MG OF MIRTAZAPINE AT NIGHT
  109. RAMIPRIL [Concomitant]
     Active Substance: RAMIPRIL
     Indication: Hypertension
     Dosage: 10 MILLIGRAM, QD
  110. RAMIPRIL [Concomitant]
     Active Substance: RAMIPRIL
     Indication: Hypertension
     Dosage: 10 MILLIGRAM, QD
     Route: 065
  111. RAMIPRIL [Concomitant]
     Active Substance: RAMIPRIL
     Dosage: 10 MILLIGRAM, QD
     Route: 065
  112. RAMIPRIL [Concomitant]
     Active Substance: RAMIPRIL
     Dosage: 10 MILLIGRAM, QD
  113. TIRZEPATIDE [Concomitant]
     Active Substance: TIRZEPATIDE
  114. TIRZEPATIDE [Concomitant]
     Active Substance: TIRZEPATIDE
  115. TIRZEPATIDE [Concomitant]
     Active Substance: TIRZEPATIDE
     Route: 065
  116. TIRZEPATIDE [Concomitant]
     Active Substance: TIRZEPATIDE
     Route: 065
  117. TIRZEPATIDE [Concomitant]
     Active Substance: TIRZEPATIDE
  118. TIRZEPATIDE [Concomitant]
     Active Substance: TIRZEPATIDE
  119. TIRZEPATIDE [Concomitant]
     Active Substance: TIRZEPATIDE
     Route: 065
  120. TIRZEPATIDE [Concomitant]
     Active Substance: TIRZEPATIDE
     Route: 065
  121. DULOXETINE [Concomitant]
     Active Substance: DULOXETINE
     Indication: Product used for unknown indication
  122. DULOXETINE [Concomitant]
     Active Substance: DULOXETINE
  123. DULOXETINE [Concomitant]
     Active Substance: DULOXETINE
     Route: 065
  124. DULOXETINE [Concomitant]
     Active Substance: DULOXETINE
     Route: 065
  125. DULOXETINE [Concomitant]
     Active Substance: DULOXETINE
  126. DULOXETINE [Concomitant]
     Active Substance: DULOXETINE
  127. DULOXETINE [Concomitant]
     Active Substance: DULOXETINE
     Route: 065
  128. DULOXETINE [Concomitant]
     Active Substance: DULOXETINE
     Route: 065
  129. INDAPAMIDE [Concomitant]
     Active Substance: INDAPAMIDE
     Indication: Product used for unknown indication
  130. INDAPAMIDE [Concomitant]
     Active Substance: INDAPAMIDE
  131. INDAPAMIDE [Concomitant]
     Active Substance: INDAPAMIDE
     Route: 065
  132. INDAPAMIDE [Concomitant]
     Active Substance: INDAPAMIDE
     Route: 065
  133. INDAPAMIDE [Concomitant]
     Active Substance: INDAPAMIDE
  134. INDAPAMIDE [Concomitant]
     Active Substance: INDAPAMIDE
  135. INDAPAMIDE [Concomitant]
     Active Substance: INDAPAMIDE
     Route: 065
  136. INDAPAMIDE [Concomitant]
     Active Substance: INDAPAMIDE
     Route: 065
  137. TELMISARTAN [Concomitant]
     Active Substance: TELMISARTAN
     Indication: Product used for unknown indication
  138. TELMISARTAN [Concomitant]
     Active Substance: TELMISARTAN
  139. TELMISARTAN [Concomitant]
     Active Substance: TELMISARTAN
     Route: 065
  140. TELMISARTAN [Concomitant]
     Active Substance: TELMISARTAN
     Route: 065
  141. TELMISARTAN [Concomitant]
     Active Substance: TELMISARTAN
  142. TELMISARTAN [Concomitant]
     Active Substance: TELMISARTAN
  143. TELMISARTAN [Concomitant]
     Active Substance: TELMISARTAN
     Route: 065
  144. TELMISARTAN [Concomitant]
     Active Substance: TELMISARTAN
     Route: 065
  145. INDAPAMIDE\TELMISARTAN [Concomitant]
     Active Substance: INDAPAMIDE\TELMISARTAN
  146. INDAPAMIDE\TELMISARTAN [Concomitant]
     Active Substance: INDAPAMIDE\TELMISARTAN
     Route: 065
  147. INDAPAMIDE\TELMISARTAN [Concomitant]
     Active Substance: INDAPAMIDE\TELMISARTAN
     Route: 065
  148. INDAPAMIDE\TELMISARTAN [Concomitant]
     Active Substance: INDAPAMIDE\TELMISARTAN

REACTIONS (20)
  - Mental disorder [Unknown]
  - Oropharyngeal pain [Not Recovered/Not Resolved]
  - Dysphagia [Recovering/Resolving]
  - Condition aggravated [Recovering/Resolving]
  - Food interaction [Recovering/Resolving]
  - Drug interaction [Recovering/Resolving]
  - Contraindicated product administered [Unknown]
  - Labelled drug-drug interaction medication error [Unknown]
  - Burning sensation [Unknown]
  - Medication error [Unknown]
  - Pain [Recovering/Resolving]
  - Throat irritation [Recovering/Resolving]
  - Drug intolerance [Unknown]
  - Off label use [Unknown]
  - Emotional distress [Unknown]
  - Increased appetite [Unknown]
  - Nausea [Unknown]
  - Weight increased [Unknown]
  - Abdominal pain [Unknown]
  - Drug ineffective [Unknown]
